FAERS Safety Report 8578787-6 (Version None)
Quarter: 2012Q3

REPORT INFORMATION
  Report Type: 
  Country: None (occurrence: None)
  Receive Date: 20120808
  Receipt Date: 20120731
  Transmission Date: 20120928
  Serious: Yes (Hospitalization)
  Sender: FDA-Public Use
  Company Number: JP-VERTEX PHARMACEUTICALS INC.-AE-2012-005597

PATIENT
  Age: 61 Year
  Sex: Male

DRUGS (10)
  1. PEG-INTRON [Concomitant]
     Route: 058
     Dates: start: 20120319, end: 20120401
  2. INCIVEK [Suspect]
     Indication: HEPATITIS C
     Route: 048
     Dates: start: 20120221, end: 20120318
  3. REBETOL [Concomitant]
     Indication: HEPATITIS C
     Route: 048
     Dates: start: 20120221, end: 20120312
  4. REBETOL [Concomitant]
     Route: 048
     Dates: start: 20120319
  5. PEG-INTRON [Concomitant]
     Indication: HEPATITIS C
     Route: 058
     Dates: start: 20120221, end: 20120318
  6. REBETOL [Concomitant]
     Route: 048
     Dates: start: 20120313, end: 20120318
  7. XYZAL [Concomitant]
     Route: 048
     Dates: start: 20120221
  8. INCIVEK [Suspect]
     Route: 048
     Dates: start: 20120319, end: 20120401
  9. REBETOL [Concomitant]
     Route: 048
     Dates: end: 20120401
  10. ALLOPURINOL [Concomitant]
     Route: 048

REACTIONS (1)
  - URINARY BLADDER HAEMORRHAGE [None]
